FAERS Safety Report 18666662 (Version 1)
Quarter: 2020Q4

REPORT INFORMATION
  Report Type: Spontaneous
  Country: JP (occurrence: JP)
  Receive Date: 20201227
  Receipt Date: 20201227
  Transmission Date: 20210114
  Serious: Yes (Hospitalization)
  Sender: FDA-Public Use
  Company Number: JP-ALXN-A202019245AA

PATIENT
  Age: 55 Year
  Sex: Male
  Weight: 69 kg

DRUGS (6)
  1. SOLIRIS [Suspect]
     Active Substance: ECULIZUMAB
     Dosage: 900 MG, Q2W
     Route: 042
     Dates: start: 20160109
  2. RELVAR [Concomitant]
     Active Substance: FLUTICASONE FUROATE\VILANTEROL TRIFENATATE
     Indication: ASTHMA
     Dosage: 1 INSUFFLATION, QD
  3. SOLIRIS [Suspect]
     Active Substance: ECULIZUMAB
     Indication: PAROXYSMAL NOCTURNAL HAEMOGLOBINURIA
     Dosage: 600 MG, QW
     Route: 042
     Dates: start: 20151205, end: 20151226
  4. ULTOMIRIS [Concomitant]
     Active Substance: RAVULIZUMAB-CWVZ
     Indication: PAROXYSMAL NOCTURNAL HAEMOGLOBINURIA
     Dosage: 2700 MG, SINGLE
     Route: 042
     Dates: start: 20191113, end: 20191113
  5. ULTOMIRIS [Concomitant]
     Active Substance: RAVULIZUMAB-CWVZ
     Dosage: 3300 MG, UNK
     Route: 042
     Dates: start: 20191127
  6. ENTERONON-R [Concomitant]
     Active Substance: PROBIOTICS NOS
     Indication: PROPHYLAXIS
     Dosage: 3 G, TID
     Route: 048
     Dates: start: 20191113, end: 20191120

REACTIONS (2)
  - Upper respiratory tract inflammation [Recovered/Resolved]
  - Chronic sinusitis [Recovering/Resolving]

NARRATIVE: CASE EVENT DATE: 20190918
